FAERS Safety Report 8069672-7 (Version None)
Quarter: 2012Q1

REPORT INFORMATION
  Report Type: 
  Country: None (occurrence: None)
  Receive Date: 20120125
  Receipt Date: 20120116
  Transmission Date: 20120608
  Serious: Yes (Death)
  Sender: FDA-Public Use
  Company Number: US-ROXANE LABORATORIES, INC.-2012-EU-00478GD

PATIENT
  Age: 51 Year
  Sex: Female

DRUGS (3)
  1. METHADONE HCL [Suspect]
  2. IBUPROFEN [Suspect]
  3. ARIPIPRAZOLE [Suspect]

REACTIONS (1)
  - DEATH [None]
